FAERS Safety Report 10856409 (Version 1)
Quarter: 2015Q1

REPORT INFORMATION
  Report Type: Spontaneous
  Country: US (occurrence: US)
  Receive Date: 20150222
  Receipt Date: 20150222
  Transmission Date: 20150721
  Serious: No
  Sender: FDA-Public Use
  Company Number: US-ALLERGAN-1420835US

PATIENT
  Age: 46 Year
  Sex: Female

DRUGS (2)
  1. BOTOX [Suspect]
     Active Substance: ONABOTULINUMTOXINA
     Indication: PRODUCT USED FOR UNKNOWN INDICATION
     Dosage: UNK UNK, SINGLE
     Dates: start: 20140821, end: 20140821
  2. SKINMEDICA VITALIZE PEEL WITH VITALIZE RETINOL SOLUTION [Suspect]
     Active Substance: COSMETICS
     Indication: PROPHYLAXIS
     Dosage: UNK
     Route: 061
     Dates: start: 20140908, end: 20140908

REACTIONS (6)
  - Erythema [Recovered/Resolved]
  - Dry skin [Recovered/Resolved]
  - Swelling [Recovered/Resolved]
  - Skin tightness [Recovered/Resolved]
  - Skin exfoliation [Recovered/Resolved]
  - Pruritus [Recovered/Resolved]

NARRATIVE: CASE EVENT DATE: 20140910
